FAERS Safety Report 19877764 (Version 12)
Quarter: 2022Q2

REPORT INFORMATION
  Report Type: Report from Study
  Country: AU (occurrence: None)
  Receive Date: 20210923
  Receipt Date: 20220406
  Transmission Date: 20220721
  Serious: Yes (Hospitalization)
  Sender: FDA-Public Use
  Company Number: AU-EISAI MEDICAL RESEARCH-EC-2021-099951

PATIENT
  Age: 52 Year
  Sex: Male
  Weight: 95.6 kg

DRUGS (17)
  1. LENVATINIB [Suspect]
     Active Substance: LENVATINIB
     Indication: Colorectal cancer
     Route: 048
     Dates: start: 20210729, end: 20210915
  2. LENVATINIB [Suspect]
     Active Substance: LENVATINIB
     Dosage: RESTARTED AT A DOSE OF 14MG, FLUCTUATED DOSAGE
     Route: 048
     Dates: start: 20210930, end: 20211123
  3. PEMBROLIZUMAB [Suspect]
     Active Substance: PEMBROLIZUMAB
     Indication: Colorectal cancer
     Dosage: UP TO 18 CYCLES
     Route: 041
     Dates: start: 20210729, end: 20210729
  4. PEMBROLIZUMAB [Suspect]
     Active Substance: PEMBROLIZUMAB
     Dosage: UP TO 18 CYCLES
     Route: 041
     Dates: start: 20210909, end: 20210909
  5. PEMBROLIZUMAB [Suspect]
     Active Substance: PEMBROLIZUMAB
     Dosage: UP TO 18 CYCLES
     Route: 041
     Dates: start: 20211111, end: 20211111
  6. MAXOLON [Concomitant]
     Active Substance: METOCLOPRAMIDE HYDROCHLORIDE
     Dates: start: 201901, end: 20220313
  7. FAMCICLOVIR [Concomitant]
     Active Substance: FAMCICLOVIR
     Dates: start: 201901, end: 20220313
  8. LIFE SPACE BROAD SPECTRUM PROBIOTIC [Concomitant]
     Dates: start: 201901, end: 20220313
  9. ACETAMINOPHEN [Concomitant]
     Active Substance: ACETAMINOPHEN
     Dates: start: 201901, end: 20220313
  10. CANNABIDIOL [Concomitant]
     Active Substance: CANNABIDIOL
     Dates: start: 201909, end: 20220313
  11. RIVAROXABAN [Concomitant]
     Active Substance: RIVAROXABAN
     Dates: start: 202002, end: 20220313
  12. DOCUSATE SODIUM\SENNOSIDES A AND B [Concomitant]
     Active Substance: DOCUSATE SODIUM\SENNOSIDES A AND B
     Dates: start: 202012, end: 20220313
  13. NEXIUM [Concomitant]
     Active Substance: ESOMEPRAZOLE MAGNESIUM
     Dates: start: 202012, end: 20220313
  14. OXYCONTIN [Concomitant]
     Active Substance: OXYCODONE HYDROCHLORIDE
     Dates: start: 201912, end: 20220313
  15. OXYCODONE HYDROCHLORIDE [Concomitant]
     Active Substance: OXYCODONE HYDROCHLORIDE
     Dates: start: 20210807, end: 20211005
  16. CARAFATE [Concomitant]
     Active Substance: SUCRALFATE
     Dates: start: 20210818, end: 20220313
  17. MELOXICAM [Concomitant]
     Active Substance: MELOXICAM
     Dates: start: 20210824, end: 20210913

REACTIONS (1)
  - Fatigue [Recovered/Resolved with Sequelae]

NARRATIVE: CASE EVENT DATE: 20210910
